FAERS Safety Report 5233234-7 (Version None)
Quarter: 2007Q1

REPORT INFORMATION
  Report Type: 
  Country: None (occurrence: None)
  Receive Date: 20070206
  Receipt Date: 20070129
  Transmission Date: 20070707
  Serious: Yes (Death)
  Sender: FDA-Public Use
  Company Number: T200700112

PATIENT
  Sex: Male

DRUGS (1)
  1. METHADOSE [Suspect]

REACTIONS (2)
  - COMPLETED SUICIDE [None]
  - DRUG DIVERSION [None]
